FAERS Safety Report 6028720-6 (Version None)
Quarter: 2009Q1

REPORT INFORMATION
  Report Type: 
  Country: None (occurrence: None)
  Receive Date: 20090102
  Receipt Date: 20081218
  Transmission Date: 20090719
  Serious: Yes (Other)
  Sender: FDA-Public Use
  Company Number: ES-GDP-08405203

PATIENT
  Sex: Male

DRUGS (2)
  1. TACTUOBEN (ADAPALENE) (BENZOYL PEROXIDE) [Suspect]
     Dosage: (1 DF QD TOPICAL), (TOPICAL)
     Route: 061
     Dates: start: 20081127, end: 20081129
  2. COSMETICS [Concomitant]

REACTIONS (1)
  - DERMATITIS ATOPIC [None]
